FAERS Safety Report 12398315 (Version 1)
Quarter: 2016Q2

REPORT INFORMATION
  Report Type: Spontaneous
  Country: GB (occurrence: GB)
  Receive Date: 20160524
  Receipt Date: 20160524
  Transmission Date: 20160815
  Serious: Yes (Hospitalization)
  Sender: FDA-Public Use
  Company Number: GB-TEVA-661357ACC

PATIENT
  Sex: Female

DRUGS (13)
  1. ACCRETE D3 [Concomitant]
  2. PARACETAMOL [Concomitant]
     Active Substance: ACETAMINOPHEN
  3. SYMBICORT [Concomitant]
     Active Substance: BUDESONIDE\FORMOTEROL FUMARATE DIHYDRATE
  4. ALENDRONIC ACID [Concomitant]
     Active Substance: ALENDRONIC ACID
  5. FUROSEMIDE. [Suspect]
     Active Substance: FUROSEMIDE
     Dosage: 60 MILLIGRAM DAILY;
     Route: 048
  6. TIOTROPIUM [Concomitant]
     Active Substance: TIOTROPIUM
  7. LANSOPRAZOLE. [Concomitant]
     Active Substance: LANSOPRAZOLE
  8. METOCLOPRAMIDE. [Concomitant]
     Active Substance: METOCLOPRAMIDE
  9. XARELTO [Concomitant]
     Active Substance: RIVAROXABAN
  10. DEXAMETHASONE. [Concomitant]
     Active Substance: DEXAMETHASONE
  11. OXYCODONE [Concomitant]
     Active Substance: OXYCODONE
  12. SALBUTAMOL [Concomitant]
     Active Substance: ALBUTEROL
  13. LIDOCAINE. [Concomitant]
     Active Substance: LIDOCAINE

REACTIONS (1)
  - Acute kidney injury [Recovered/Resolved]
